FAERS Safety Report 6235680 (Version 2)
Quarter: 2012Q4

REPORT INFORMATION
  Report Type: 
  Country: US (occurrence: US)
  Receive Date: 20070210
  Receipt Date: 20121121
  Transmission Date: 20130627
  Serious: Yes (Other)
  Sender: FDA-Public Use
  Company Number: US-JNJFOC-20070201782

PATIENT
  Sex: Male
  Weight: 68.04 kg

DRUGS (8)
  1. MOTRIN [Suspect]
     Indication: PAIN IN EXTREMITY
     Dosage: ^on and off^
     Route: 048
     Dates: start: 1975
  2. MOTRIN [Suspect]
     Indication: BACK PAIN
     Dosage: ^on and off^
     Route: 048
     Dates: start: 1975
  3. METHADONE [Concomitant]
  4. TYLENOL [Concomitant]
     Indication: PRODUCT USED FOR UNKNOWN INDICATION
     Dosage: dose unknown
  5. VALIUM [Concomitant]
     Indication: PRODUCT USED FOR UNKNOWN INDICATION
  6. METFORMIN [Concomitant]
     Indication: PRODUCT USED FOR UNKNOWN INDICATION
     Dates: start: 2000
  7. GLYBURIDE [Concomitant]
     Indication: PRODUCT USED FOR UNKNOWN INDICATION
     Dates: start: 2000
  8. FIBROZIL [Concomitant]
     Indication: PRODUCT USED FOR UNKNOWN INDICATION
     Dates: start: 2000

REACTIONS (2)
  - Diabetes mellitus [Not Recovered/Not Resolved]
  - Pain [Not Recovered/Not Resolved]
